FAERS Safety Report 12978159 (Version 1)
Quarter: 2016Q4

REPORT INFORMATION
  Report Type: Spontaneous
  Country: US (occurrence: US)
  Receive Date: 20161126
  Receipt Date: 20161126
  Transmission Date: 20170207
  Serious: Yes (Hospitalization, Other)
  Sender: FDA-Public Use
  Company Number: None

PATIENT
  Age: 66 Year
  Sex: Female
  Weight: 80 kg

DRUGS (11)
  1. BISACODYL. [Concomitant]
     Active Substance: BISACODYL
  2. PIPERACILLIN/TAZOBACTAM [Concomitant]
     Active Substance: PIPERACILLIN SODIUM\TAZOBACTAM SODIUM
  3. AZTREONAM. [Suspect]
     Active Substance: AZTREONAM
     Indication: DRUG RESISTANCE
     Route: 041
     Dates: start: 20160908, end: 20160911
  4. ENOXAPARIN [Concomitant]
     Active Substance: ENOXAPARIN
  5. GABAPENTIN. [Concomitant]
     Active Substance: GABAPENTIN
  6. MEROPENEM. [Concomitant]
     Active Substance: MEROPENEM
  7. PHENAZOPYRIDINE. [Concomitant]
     Active Substance: PHENAZOPYRIDINE
  8. VALSARTAN. [Concomitant]
     Active Substance: VALSARTAN
  9. AZTREONAM. [Suspect]
     Active Substance: AZTREONAM
     Indication: DEVICE RELATED INFECTION
     Route: 041
     Dates: start: 20160908, end: 20160911
  10. AZTREONAM. [Suspect]
     Active Substance: AZTREONAM
     Indication: URINARY TRACT INFECTION
     Route: 041
     Dates: start: 20160908, end: 20160911
  11. CIPROFLOXACIN. [Concomitant]
     Active Substance: CIPROFLOXACIN

REACTIONS (5)
  - Coagulopathy [None]
  - Malaise [None]
  - Transaminases increased [None]
  - Myalgia [None]
  - Chest pain [None]

NARRATIVE: CASE EVENT DATE: 20160911
